FAERS Safety Report 6148557-7 (Version None)
Quarter: 2009Q2

REPORT INFORMATION
  Report Type: 
  Country: None (occurrence: None)
  Receive Date: 20090406
  Receipt Date: 20090406
  Transmission Date: 20091009
  Serious: Yes (Life-Threatening, Other)
  Sender: FDA-Public Use
  Company Number: None

PATIENT
  Age: 52 Year
  Sex: Male
  Weight: 58.9676 kg

DRUGS (1)
  1. NORDITROPIN [Suspect]
     Indication: FATIGUE
     Dosage: 0.35 CC DAILY SQ
     Dates: start: 20060501, end: 20080501

REACTIONS (16)
  - ALOPECIA [None]
  - AMNESIA [None]
  - BALANCE DISORDER [None]
  - BLINDNESS [None]
  - DISTURBANCE IN ATTENTION [None]
  - DRUG HYPERSENSITIVITY [None]
  - DRY SKIN [None]
  - DYSARTHRIA [None]
  - HAEMATOCHEZIA [None]
  - HYPOAESTHESIA [None]
  - IMPAIRED HEALING [None]
  - MYCOTOXICOSIS [None]
  - NO THERAPEUTIC RESPONSE [None]
  - PAIN [None]
  - TACHYCARDIA [None]
  - TREMOR [None]
